FAERS Safety Report 7458687-5 (Version None)
Quarter: 2011Q2

REPORT INFORMATION
  Report Type: 
  Country: None (occurrence: None)
  Receive Date: 20110504
  Receipt Date: 20110420
  Transmission Date: 20111010
  Serious: Yes (Hospitalization)
  Sender: FDA-Public Use
  Company Number: JP-JNJFOC-20101104607

PATIENT
  Age: 65 Year
  Sex: Female
  Weight: 42 kg

DRUGS (14)
  1. REMICADE [Suspect]
     Indication: CROHN'S DISEASE
     Route: 042
  2. STEROIDS NOS [Concomitant]
  3. REMICADE [Suspect]
     Route: 042
  4. ANTIHISTAMINE [Concomitant]
     Indication: PREMEDICATION
  5. ANTIHISTAMINE [Concomitant]
  6. ALLEGRA [Concomitant]
     Indication: RHINITIS ALLERGIC
     Route: 048
  7. GASTER D [Concomitant]
     Indication: PROPHYLAXIS
     Route: 048
  8. REMICADE [Suspect]
     Route: 042
  9. ACETAMINOPHEN [Concomitant]
  10. METHYCOBAL [Concomitant]
     Indication: PROPHYLAXIS
  11. REMICADE [Suspect]
     Route: 042
  12. REMICADE [Suspect]
     Route: 042
  13. ACETAMINOPHEN [Concomitant]
     Indication: PREMEDICATION
  14. STEROIDS NOS [Concomitant]
     Indication: PREMEDICATION

REACTIONS (2)
  - ARTHRITIS [None]
  - SUBILEUS [None]
